FAERS Safety Report 9626761 (Version 2)
Quarter: 2014Q1

REPORT INFORMATION
  Report Type: Spontaneous
  Country: US (occurrence: US)
  Receive Date: 20131016
  Receipt Date: 20140325
  Transmission Date: 20141002
  Serious: Yes (Life-Threatening, Hospitalization, Other)
  Sender: FDA-Public Use
  Company Number: US-GLAXOSMITHKLINE-A1045244A

PATIENT
  Age: 50 Year
  Sex: Female

DRUGS (13)
  1. ARIXTRA [Suspect]
     Indication: PULMONARY EMBOLISM
     Dosage: 2.5MG PER DAY
     Route: 058
     Dates: start: 20131004
  2. TYLENOL [Concomitant]
  3. BENADRYL [Concomitant]
  4. PEPCID [Concomitant]
  5. MOTRIN [Concomitant]
  6. ATIVAN [Concomitant]
  7. FLAGYL [Concomitant]
  8. ZOFRAN [Concomitant]
  9. PERCOCET [Concomitant]
  10. POTASSIUM [Concomitant]
  11. PHENERGAN [Concomitant]
  12. BACTRIM [Concomitant]
  13. VANCOMYCIN [Concomitant]

REACTIONS (5)
  - Rectal haemorrhage [Recovered/Resolved]
  - Nausea [Recovered/Resolved]
  - Vomiting [Recovered/Resolved]
  - Pseudomembranous colitis [Recovered/Resolved]
  - Gastrointestinal haemorrhage [Recovered/Resolved]
